FAERS Safety Report 14884222 (Version 1)
Quarter: 2018Q2

REPORT INFORMATION
  Report Type: Spontaneous
  Country: NL (occurrence: NL)
  Receive Date: 20180511
  Receipt Date: 20180511
  Transmission Date: 20180711
  Serious: Yes (Other)
  Sender: FDA-Public Use
  Company Number: NL-TEVA-2018-NL-891647

PATIENT
  Age: 37 Year
  Sex: Male

DRUGS (4)
  1. RISEDRONIC ACID [Suspect]
     Active Substance: RISEDRONIC ACID
     Indication: OSTEOPOROSIS PROPHYLAXIS
     Dosage: ZONDAG
     Dates: start: 20180225, end: 20180226
  2. PREDNISOLON 5MG [Concomitant]
     Route: 065
  3. OMEPRAZOL 20MG 2X DAAGS 1 [Concomitant]
     Dosage: 40 MILLIGRAM DAILY;
  4. AVAMYS [Concomitant]
     Active Substance: FLUTICASONE FUROATE
     Dosage: 55 MICROGRAM DAILY;
     Route: 065

REACTIONS (8)
  - Paraesthesia [Recovering/Resolving]
  - Pain in extremity [Recovering/Resolving]
  - Anaphylactic reaction [Recovering/Resolving]
  - Throat tightness [Recovering/Resolving]
  - Glossodynia [Recovering/Resolving]
  - Cyanosis [Recovering/Resolving]
  - Palpitations [Recovering/Resolving]
  - Dyspnoea [Recovering/Resolving]

NARRATIVE: CASE EVENT DATE: 20180225
